FAERS Safety Report 9814770 (Version 1)
Quarter: 2014Q1

REPORT INFORMATION
  Report Type: Spontaneous
  Country: US (occurrence: US)
  Receive Date: 20140113
  Receipt Date: 20140113
  Transmission Date: 20141002
  Serious: No
  Sender: FDA-Public Use
  Company Number: US-SA-2013SA117439

PATIENT
  Age: 68 Year
  Sex: Male

DRUGS (2)
  1. JEVTANA [Suspect]
     Indication: PROSTATE CANCER METASTATIC
     Route: 065
     Dates: start: 20131030
  2. TAXOTERE [Suspect]
     Route: 065

REACTIONS (2)
  - Incontinence [Not Recovered/Not Resolved]
  - Rash [Not Recovered/Not Resolved]
